FAERS Safety Report 6195819-3 (Version None)
Quarter: 2009Q2

REPORT INFORMATION
  Report Type: 
  Country: None (occurrence: None)
  Receive Date: 20090520
  Receipt Date: 20090512
  Transmission Date: 20091009
  Serious: Yes (Hospitalization)
  Sender: FDA-Public Use
  Company Number: FR-SANOFI-SYNTHELABO-A01200902729

PATIENT
  Sex: Female

DRUGS (11)
  1. ROCEPHIN [Interacting]
     Indication: INFECTION
     Dosage: UNK
     Route: 065
     Dates: start: 20090101, end: 20090101
  2. PLAVIX [Interacting]
     Indication: STENT PLACEMENT
     Route: 048
     Dates: start: 20081101
  3. PLAVIX [Interacting]
     Indication: MYOCARDIAL INFARCTION
     Route: 048
     Dates: start: 20081101
  4. NEXIUM [Concomitant]
     Indication: HIATUS HERNIA
     Route: 065
     Dates: start: 20080101
  5. INIPOMP [Concomitant]
     Indication: HIATUS HERNIA
     Dosage: UNK
     Route: 065
     Dates: start: 20080101
  6. OMACOR [Concomitant]
     Indication: MYOCARDIAL INFARCTION
     Dosage: UNK
     Route: 065
     Dates: start: 20081101
  7. TRIATEC [Concomitant]
     Indication: MYOCARDIAL INFARCTION
     Dosage: UNK
     Route: 065
     Dates: start: 20081101
  8. CRESTOR [Concomitant]
     Indication: DRUG USE FOR UNKNOWN INDICATION
     Route: 065
  9. TEMERIT [Concomitant]
     Indication: DRUG USE FOR UNKNOWN INDICATION
     Route: 065
  10. KARDEGIC [Suspect]
     Indication: STENT PLACEMENT
     Route: 065
     Dates: start: 20081101, end: 20090301
  11. KARDEGIC [Suspect]
     Indication: MYOCARDIAL INFARCTION
     Route: 065
     Dates: start: 20081101, end: 20090301

REACTIONS (4)
  - ANAEMIA [None]
  - ASTHENIA [None]
  - DRUG INTERACTION [None]
  - THROMBOCYTHAEMIA [None]
